FAERS Safety Report 5066661-1 (Version None)
Quarter: 2006Q3

REPORT INFORMATION
  Report Type: 
  Country: None (occurrence: None)
  Receive Date: 20060710
  Receipt Date: 20060305
  Transmission Date: 20061208
  Serious: Yes (Other)
  Sender: FDA-Public Use
  Company Number: PHEH2005US13413

PATIENT
  Age: 61 Year
  Sex: Female

DRUGS (5)
  1. GLEEVEC [Suspect]
     Indication: CHRONIC MYELOID LEUKAEMIA
     Dosage: SEE IMAGE
     Route: 048
     Dates: start: 20041013
  2. PROCRIT (ERYTHROPOITIN) [Concomitant]
  3. PREDNISONE TAB [Concomitant]
  4. CARAFATE [Concomitant]
  5. PROTONIX [Concomitant]

REACTIONS (3)
  - ANAEMIA [None]
  - PANCYTOPENIA [None]
  - THROMBOCYTOPENIA [None]
